FAERS Safety Report 12230568 (Version 1)
Quarter: 2016Q2

REPORT INFORMATION
  Report Type: Spontaneous
  Country: US (occurrence: US)
  Receive Date: 20160401
  Receipt Date: 20160401
  Transmission Date: 20160815
  Serious: Yes (Other)
  Sender: FDA-Public Use
  Company Number: US-JNJFOC-20160218812

PATIENT
  Age: 71 Year
  Sex: Male

DRUGS (28)
  1. PROAIR HFA [Concomitant]
     Active Substance: ALBUTEROL SULFATE
     Indication: CARDIAC DISORDER
     Dosage: 1 PUFF EVERY AM AND PM
     Route: 065
     Dates: start: 20160104
  2. FUROSEMIDE. [Concomitant]
     Active Substance: FUROSEMIDE
     Indication: FLUID RETENTION
     Route: 048
     Dates: start: 20150521
  3. ALLOPURINOL. [Concomitant]
     Active Substance: ALLOPURINOL
     Indication: GOUT
     Dosage: QHS (EVERY BED TIME)
     Route: 048
     Dates: start: 20150824
  4. CLOBETASOL [Concomitant]
     Active Substance: CLOBETASOL
     Dosage: APPLY TO THE AFFECTED AREA(S) 2 TIMES PER DAY IN THE MORNING AND EVENING
     Route: 061
     Dates: start: 20130501
  5. METROGEL [Concomitant]
     Active Substance: METRONIDAZOLE
     Dosage: APPLY TO THE AFFECTED AREA ONCE DAILY; RUB IN GENTLLY AND COMPLETELY.
     Route: 061
     Dates: start: 20130501
  6. FERROUS SULFATE. [Concomitant]
     Active Substance: FERROUS SULFATE
     Route: 065
     Dates: start: 20160216
  7. SPIRONOLACTONE. [Concomitant]
     Active Substance: SPIRONOLACTONE
     Route: 048
     Dates: start: 20160104
  8. SYMBICORT [Concomitant]
     Active Substance: BUDESONIDE\FORMOTEROL FUMARATE DIHYDRATE
     Indication: ASTHMA
     Dosage: 2 PUFFS BY INHALATION IN THE MORNING AND EVENING
     Route: 065
     Dates: start: 20150824
  9. ATACAND [Concomitant]
     Active Substance: CANDESARTAN CILEXETIL
     Indication: BLOOD PRESSURE MEASUREMENT
     Route: 048
     Dates: start: 20150824
  10. VIAGRA [Concomitant]
     Active Substance: SILDENAFIL CITRATE
     Dosage: 1 TIME PER DAY APPROXIMATELY 1 HOUR BEFORE SEXUAL ACTIVITY PRN (AS NECESSARY)
     Route: 048
     Dates: start: 20150521
  11. VITAMIN B COMPLEX [Concomitant]
     Active Substance: CYANOCOBALAMIN\DEXPANTHENOL\NIACINAMIDE\PYRIDOXINE HYDROCHLORIDE\RIBOFLAVIN 5^-PHOSPHATE SODIUM\THIAMINE HYDROCHLORIDE\VITAMIN B COMPLEX
     Route: 065
     Dates: start: 20150521
  12. JANUVIA [Concomitant]
     Active Substance: SITAGLIPTIN PHOSPHATE
     Indication: DIABETES MELLITUS
     Route: 048
     Dates: start: 20150521
  13. FUROSEMIDE. [Concomitant]
     Active Substance: FUROSEMIDE
     Indication: CARDIAC DISORDER
     Route: 048
     Dates: start: 20150521
  14. ADVAIR HFA [Concomitant]
     Active Substance: FLUTICASONE PROPIONATE\SALMETEROL XINAFOATE
     Indication: ASTHMA
     Dosage: 2 PUFFS BY INHALATION 2 TIMES PER DAY
     Route: 065
     Dates: start: 20150824
  15. METOLAZONE. [Concomitant]
     Active Substance: METOLAZONE
     Dosage: 1 TABLET BY MOUTH 30 MINUTES PRIOR TO MORNING DOSE OF LASIX ON MONDAY, WEDNESDAY AND FRIDAY
     Route: 065
     Dates: start: 20150824
  16. FLUTICASONE [Concomitant]
     Active Substance: FLUTICASONE\FLUTICASONE PROPIONATE
     Indication: SINUS DISORDER
     Dosage: 1 SPRAY 2 TIMES PER DAY PRN (AS NECESSARY)
     Route: 045
     Dates: start: 20150521
  17. LANTUS [Concomitant]
     Active Substance: INSULIN GLARGINE
     Indication: DIABETES MELLITUS
     Route: 058
     Dates: start: 20160104
  18. NEXIUM [Concomitant]
     Active Substance: ESOMEPRAZOLE MAGNESIUM
     Indication: GASTROOESOPHAGEAL REFLUX DISEASE
     Dosage: QAM (EVERY MORNING)
     Route: 048
     Dates: start: 20150521
  19. GABAPENTIN. [Concomitant]
     Active Substance: GABAPENTIN
     Dosage: 1 AT BED TIME
     Route: 048
     Dates: start: 20160104
  20. ZANAFLEX [Concomitant]
     Active Substance: TIZANIDINE HYDROCHLORIDE
     Indication: MUSCLE SPASMS
     Dosage: 1 TABLET EVERY 6 HOURS PRN
     Route: 048
     Dates: start: 20150924
  21. XARELTO [Suspect]
     Active Substance: RIVAROXABAN
     Indication: ANTICOAGULANT THERAPY
     Route: 048
     Dates: start: 201312
  22. AMARYL [Concomitant]
     Active Substance: GLIMEPIRIDE
     Indication: DIABETES MELLITUS
     Dosage: BEFORE MEALS (AC)
     Route: 048
     Dates: start: 20150521
  23. DOXYCYCLINE HYCLATE. [Concomitant]
     Active Substance: DOXYCYCLINE HYCLATE
     Route: 048
     Dates: start: 20140311
  24. ATACAND [Concomitant]
     Active Substance: CANDESARTAN CILEXETIL
     Indication: CARDIAC DISORDER
     Route: 048
     Dates: start: 20150824
  25. METFORMIN [Concomitant]
     Active Substance: METFORMIN HYDROCHLORIDE
     Indication: DIABETES MELLITUS
     Dosage: 2 TABLETS 1 TIME PER DAY BEFOR MEALS (AC AM)
     Route: 048
     Dates: start: 20150521
  26. ALEVE [Concomitant]
     Active Substance: NAPROXEN SODIUM
     Route: 065
     Dates: start: 20130730
  27. AMIODARONE [Concomitant]
     Active Substance: AMIODARONE
     Dosage: 2 TABLETS TWICE DAILY (BID) FOR 7 DAYS, THEN DECREASE TO 1 TABLET BID
     Route: 048
     Dates: start: 20151021
  28. MAGNESIUM OXIDE. [Concomitant]
     Active Substance: MAGNESIUM OXIDE
     Indication: PRODUCT USED FOR UNKNOWN INDICATION
     Route: 048
     Dates: start: 20150924

REACTIONS (3)
  - Epistaxis [Unknown]
  - Haemoglobin decreased [Unknown]
  - International normalised ratio increased [Unknown]

NARRATIVE: CASE EVENT DATE: 20160215
